FAERS Safety Report 4492723-3 (Version None)
Quarter: 2004Q4

REPORT INFORMATION
  Report Type: 
  Country: None (occurrence: None)
  Receive Date: 20041104
  Receipt Date: 20040824
  Transmission Date: 20050328
  Serious: Yes (Hospitalization)
  Sender: FDA-Public Use
  Company Number: 200416483US

PATIENT
  Age: 60 Year
  Sex: Male
  Weight: 68.2 kg

DRUGS (2)
  1. LOVENOX [Suspect]
     Dates: start: 20040803, end: 20040806
  2. WARFARIN SODIUM [Concomitant]
     Dosage: DOSE: UNK

REACTIONS (2)
  - POST PROCEDURAL HAEMORRHAGE [None]
  - PROTHROMBIN TIME PROLONGED [None]
